FAERS Safety Report 23849389 (Version 1)
Quarter: 2024Q2

REPORT INFORMATION
  Report Type: Spontaneous
  Country: US (occurrence: None)
  Receive Date: 20240512
  Receipt Date: 20240512
  Transmission Date: 20240716
  Serious: Yes (Hospitalization)
  Sender: FDA-Public Use
  Company Number: None

PATIENT
  Age: 56 Year
  Sex: Male
  Weight: 167 kg

DRUGS (2)
  1. CIPROFLOXACIN [Suspect]
     Active Substance: CIPROFLOXACIN
     Dosage: FREQUENCY : TWICE A DAY;?
     Route: 048
     Dates: start: 20200601, end: 20200603
  2. CIPROFLOXACIN [Suspect]
     Active Substance: CIPROFLOXACIN

REACTIONS (5)
  - Rash [None]
  - Skin exfoliation [None]
  - Septic shock [None]
  - Dehydration [None]
  - Skin injury [None]

NARRATIVE: CASE EVENT DATE: 20200601
